FAERS Safety Report 15925192 (Version 1)
Quarter: 2019Q1

REPORT INFORMATION
  Report Type: Spontaneous
  Country: US (occurrence: US)
  Receive Date: 20190206
  Receipt Date: 20190206
  Transmission Date: 20190417
  Serious: Yes (Other)
  Sender: FDA-Public Use
  Company Number: None

PATIENT
  Age: 40 Year
  Sex: Female

DRUGS (1)
  1. AIMOVIG [Suspect]
     Active Substance: ERENUMAB-AOOE
     Indication: MIGRAINE
     Dosage: 70 MG EVERY 28 DAYS; SUBCUTANEOUS?
     Route: 058
     Dates: start: 20181201, end: 20190204

REACTIONS (2)
  - Rash [None]
  - Arthralgia [None]

NARRATIVE: CASE EVENT DATE: 20190206
